FAERS Safety Report 22270796 (Version 2)
Quarter: 2023Q2

REPORT INFORMATION
  Report Type: Report from Study
  Country: US (occurrence: US)
  Receive Date: 20230501
  Receipt Date: 20230531
  Transmission Date: 20230722
  Serious: Yes (Hospitalization, Other)
  Sender: FDA-Public Use
  Company Number: US-EXELIXIS-XL18423063154

PATIENT

DRUGS (2)
  1. PLACEBO [Suspect]
     Active Substance: UNSPECIFIED INGREDIENT
     Indication: Malignant neoplasm of islets of Langerhans
     Dosage: 60 MG, QD
     Route: 048
     Dates: start: 20230207, end: 20230503
  2. CABOZANTINIB [Suspect]
     Active Substance: CABOZANTINIB
     Indication: Malignant neoplasm of islets of Langerhans
     Dosage: 60 MG, QD
     Route: 048
     Dates: start: 20230207, end: 20230503

REACTIONS (4)
  - Oesophageal haemorrhage [Recovered/Resolved]
  - Haematemesis [Recovered/Resolved]
  - Hepatic encephalopathy [Not Recovered/Not Resolved]
  - Hyperglycaemia [Not Recovered/Not Resolved]

NARRATIVE: CASE EVENT DATE: 20230420
